FAERS Safety Report 4704859-X (Version None)
Quarter: 2005Q3

REPORT INFORMATION
  Report Type: 
  Country: None (occurrence: None)
  Receive Date: 20050701
  Receipt Date: 20050620
  Transmission Date: 20060218
  Serious: Yes (Hospitalization)
  Sender: FDA-Public Use
  Company Number: FR-ABBOTT-05P-056-0303912-00

PATIENT
  Sex: Male
  Weight: 16.3 kg

DRUGS (7)
  1. NORVIR [Suspect]
     Indication: DRUG EXPOSURE DURING PREGNANCY
  2. DIDANOSINE [Suspect]
     Indication: DRUG EXPOSURE DURING PREGNANCY
  3. DIDANOSINE [Suspect]
     Indication: PROPHYLAXIS AGAINST HIV INFECTION
  4. INDINAVIR [Suspect]
     Indication: DRUG EXPOSURE DURING PREGNANCY
  5. ABACAVIR [Suspect]
     Indication: DRUG EXPOSURE DURING PREGNANCY
  6. NEVIRAPINE [Suspect]
     Indication: DRUG EXPOSURE DURING PREGNANCY
  7. NEVIRAPINE [Suspect]
     Indication: PROPHYLAXIS AGAINST HIV INFECTION
     Dates: start: 20000318, end: 20000318

REACTIONS (7)
  - BLOOD LACTIC ACID INCREASED [None]
  - BLOOD PYRUVIC ACID INCREASED [None]
  - HYPERTRIGLYCERIDAEMIA [None]
  - LACTATE PYRUVATE RATIO INCREASED [None]
  - MICROCYTOSIS [None]
  - NEUTROPENIA [None]
  - SPEECH DISORDER DEVELOPMENTAL [None]
